FAERS Safety Report 9731203 (Version 6)
Quarter: 2014Q3

REPORT INFORMATION
  Report Type: Report from Study
  Country: JP (occurrence: JP)
  Receive Date: 20131203
  Receipt Date: 20140703
  Transmission Date: 20150326
  Serious: Yes (Hospitalization, Other)
  Sender: FDA-Public Use
  Company Number: JP-009507513-1312JPN000124

PATIENT
  Age: 77 Year
  Sex: Male

DRUGS (7)
  1. OPALMON [Concomitant]
     Active Substance: LIMAPROST
     Indication: NEUROPATHY PERIPHERAL
     Dosage: 5 MG, DAILY, DIVIDED DOSE FREQUENCY UNKNOWN
     Route: 048
  2. MAGNESIUM OXIDE. [Concomitant]
     Active Substance: MAGNESIUM OXIDE
     Indication: CONSTIPATION
     Dosage: 1.5 G, DAILY, DIVIDED DOSE FREQUENCY UNKNOWN
     Route: 048
  3. METHYCOBAL [Concomitant]
     Active Substance: METHYLCOBALAMIN
     Indication: NEUROPATHY PERIPHERAL
     Dosage: 1500 MG, DAILY , DIVIDED DOSE FREQUENCY UNKNOWN
     Route: 048
  4. NORVASC [Concomitant]
     Active Substance: AMLODIPINE BESYLATE
     Indication: HYPERTENSION
     Dosage: 25 MG, DAILY, DIVIDED DOSE FREQUENCY UNKNOWN
     Route: 048
  5. CALONAL [Concomitant]
     Active Substance: ACETAMINOPHEN
     Indication: HEADACHE
     Dosage: 200 MG, DAILY, FORMULATION: POR, DIVIDED DOSE FREQUENCY UNKNOWN
     Route: 048
  6. DIAZOXIDE CAPSULES 25 MG ^MSD^ [Suspect]
     Active Substance: DIAZOXIDE
     Indication: HYPOGLYCAEMIA
     Dosage: 50 MG, TID
     Route: 048
     Dates: start: 20130915, end: 20130923
  7. FAMOTIDINE. [Concomitant]
     Active Substance: FAMOTIDINE
     Indication: GASTRITIS
     Dosage: 20 MG DAILY, POR, DIVIDED DOSE FREQUENCY UNKNOWN
     Route: 048

REACTIONS (4)
  - Liver disorder [Recovered/Resolved]
  - Pyrexia [Recovered/Resolved]
  - Renal disorder [Recovered/Resolved]
  - Rash [Recovered/Resolved]

NARRATIVE: CASE EVENT DATE: 20130921
